FAERS Safety Report 8097503-8 (Version None)
Quarter: 2012Q1

REPORT INFORMATION
  Report Type: 
  Country: None (occurrence: None)
  Receive Date: 20120129
  Receipt Date: 20120123
  Transmission Date: 20120608
  Serious: Yes (Death)
  Sender: FDA-Public Use
  Company Number: ES-BRISTOL-MYERS SQUIBB COMPANY-16361701

PATIENT
  Age: 75 Year
  Sex: Male

DRUGS (13)
  1. HYDREA [Suspect]
     Indication: MYELOPROLIFERATIVE DISORDER
     Dosage: INTERRUPTED ON 02NOV2011
     Route: 048
     Dates: start: 20080101
  2. FUROSEMIDE [Concomitant]
  3. FLUTICASONE PROPIONATE [Concomitant]
  4. TIOPRONIN [Concomitant]
  5. PANTOPRAZOLE [Concomitant]
  6. DIGOXIN [Concomitant]
  7. EBASTINE [Concomitant]
  8. BONIVA [Concomitant]
  9. INSULIN GLARGINE [Concomitant]
  10. SALMETEROL [Concomitant]
  11. ACENOCOUMAROL [Concomitant]
  12. CARVEDILOL [Concomitant]
  13. LORAZEPAM [Concomitant]

REACTIONS (1)
  - INTERSTITIAL LUNG DISEASE [None]
